FAERS Safety Report 11540993 (Version 1)
Quarter: 2015Q3

REPORT INFORMATION
  Report Type: Spontaneous
  Country: US (occurrence: US)
  Receive Date: 20150923
  Receipt Date: 20150923
  Transmission Date: 20151125
  Serious: No
  Sender: FDA-Public Use
  Company Number: US-ENDO PHARMACEUTICALS INC.-BENZ20150001

PATIENT
  Sex: Female

DRUGS (2)
  1. BENZTROPINE MESYLATE TABLETS 1MG [Suspect]
     Active Substance: BENZTROPINE MESYLATE
     Indication: PRODUCT USED FOR UNKNOWN INDICATION
     Route: 048
     Dates: start: 201412
  2. RISPERIDONE TABLETS 0.5MG [Concomitant]
     Active Substance: RISPERIDONE
     Indication: PRODUCT USED FOR UNKNOWN INDICATION

REACTIONS (1)
  - Heart rate irregular [Unknown]

NARRATIVE: CASE EVENT DATE: 201501
